FAERS Safety Report 8398144-5 (Version None)
Quarter: 2012Q2

REPORT INFORMATION
  Report Type: 
  Country: None (occurrence: None)
  Receive Date: 20120531
  Receipt Date: 20120525
  Transmission Date: 20120825
  Serious: Yes (Disabling)
  Sender: FDA-Public Use
  Company Number: PHHY2012GB044923

PATIENT
  Age: 94 Year
  Sex: Male

DRUGS (16)
  1. DOXYCYCLINE [Suspect]
     Dosage: 100 MG, UNK
     Route: 048
     Dates: start: 20120316
  2. ACETAMINOPHEN [Concomitant]
     Dosage: 250 MG, UNK
     Route: 048
     Dates: start: 20120320
  3. LATANOPROST [Concomitant]
     Indication: GLAUCOMA
     Dosage: 50 MG, UNK
     Route: 047
     Dates: start: 20100920
  4. SENNA-MINT WAF [Concomitant]
     Dosage: 7.5 MG, UNK
  5. DOXYCYCLINE [Suspect]
     Dosage: 100 MG, UNK
     Dates: start: 20120412
  6. CALCIUM CARBONATE [Concomitant]
     Route: 048
  7. HYPROMELLOSE [Concomitant]
     Indication: GLAUCOMA
     Route: 047
     Dates: start: 20110208
  8. MACROGOL 3350 [Concomitant]
     Route: 048
  9. TRIMETHOPRIM [Concomitant]
     Dosage: 50 MG, UNK
  10. ALENDRONATE SODIUM [Concomitant]
     Dosage: 70 MG, UNK
     Route: 048
     Dates: start: 20101110
  11. NITROFURANTOIN [Concomitant]
     Dosage: 50 MG, UNK
     Route: 048
     Dates: start: 20120320
  12. SALMETEROL [Concomitant]
     Indication: ASTHMA
     Dosage: 125 UG, UNK
  13. CIPROFLOXACIN [Concomitant]
     Dosage: 250 MG, UNK
     Route: 048
  14. NITROFURANTOIN [Concomitant]
     Dosage: 50 MG, UNK
     Route: 048
     Dates: start: 20120426
  15. AQUEOUS CREAM [Concomitant]
     Route: 061
  16. ALBUTEROL [Concomitant]
     Dosage: 100 MG, UNK

REACTIONS (1)
  - PRESYNCOPE [None]
